FAERS Safety Report 4627522-2 (Version None)
Quarter: 2005Q2

REPORT INFORMATION
  Report Type: 
  Country: None (occurrence: None)
  Receive Date: 20050405
  Receipt Date: 20050322
  Transmission Date: 20051028
  Serious: Yes (Hospitalization)
  Sender: FDA-Public Use
  Company Number: HQWYE348524MAR05

PATIENT
  Age: 59 Year
  Sex: Female
  Weight: 64.92 kg

DRUGS (5)
  1. RAPAMUNE [Suspect]
     Indication: PROPHYLAXIS AGAINST TRANSPLANT REJECTION
     Dosage: DOSE VARIES (CONCENTRATION CONTROLLED) 3 MG DAILY AT TIME OF EVENT; ORAL
     Route: 048
     Dates: start: 20050127
  2. EVISTA [Concomitant]
  3. ATARAX [Concomitant]
  4. PROTONIX [Concomitant]
  5. PROTONIX [Concomitant]

REACTIONS (5)
  - ANAEMIA [None]
  - BLOOD CREATINE PHOSPHOKINASE INCREASED [None]
  - BLOOD CREATINE PHOSPHOKINASE MB INCREASED [None]
  - PULMONARY OEDEMA [None]
  - PYREXIA [None]
